FAERS Safety Report 6334979-8 (Version None)
Quarter: 2009Q3

REPORT INFORMATION
  Report Type: 
  Country: None (occurrence: None)
  Receive Date: 20090831
  Receipt Date: 20090818
  Transmission Date: 20100115
  Serious: Yes (Death)
  Sender: FDA-Public Use
  Company Number: JP-PFIZER INC-2009252327

PATIENT
  Age: 84 Year

DRUGS (2)
  1. DIFLUCAN [Suspect]
     Indication: FUNGAL INFECTION
     Dosage: 300 MG/DAY
     Route: 042
     Dates: start: 20090728, end: 20090729
  2. VORICONAZOLE [Suspect]
     Indication: FUNGAL INFECTION
     Dosage: UNK
     Dates: start: 20090101, end: 20090101

REACTIONS (2)
  - DEATH [None]
  - DRUG ERUPTION [None]
